FAERS Safety Report 18209364 (Version 2)
Quarter: 2020Q3

REPORT INFORMATION
  Report Type: Report from Study
  Country: BR (occurrence: BR)
  Receive Date: 20200828
  Receipt Date: 20200902
  Transmission Date: 20201103
  Serious: Yes (Disabling, Other)
  Sender: FDA-Public Use
  Company Number: NVSC2020BR235400

PATIENT
  Age: 68 Year
  Sex: Male
  Weight: 80 kg

DRUGS (4)
  1. COSENTYX [Suspect]
     Active Substance: SECUKINUMAB
     Dosage: UNK
     Route: 065
     Dates: start: 20200820
  2. COSENTYX [Suspect]
     Active Substance: SECUKINUMAB
     Indication: PSORIASIS
     Dosage: 300 MG (EVERY 15 DAYS, TWO AMPOULES)
     Route: 058
     Dates: start: 202002, end: 202003
  3. COSENTYX [Suspect]
     Active Substance: SECUKINUMAB
     Dosage: 300 MG (EVERY 15 DAYS, ONE AMPOULE)
     Route: 058
     Dates: start: 202004
  4. COSENTYX [Suspect]
     Active Substance: SECUKINUMAB
     Dosage: 300 MG, UNKNOWN
     Route: 065
     Dates: start: 20200620

REACTIONS (10)
  - Accident [Recovering/Resolving]
  - Fall [Recovering/Resolving]
  - Pain [Unknown]
  - Product dose omission issue [Recovering/Resolving]
  - Ankle fracture [Recovering/Resolving]
  - Psoriasis [Recovering/Resolving]
  - Tibia fracture [Recovering/Resolving]
  - Inappropriate schedule of product administration [Unknown]
  - Gait inability [Recovering/Resolving]
  - Foot fracture [Recovering/Resolving]

NARRATIVE: CASE EVENT DATE: 202007
